FAERS Safety Report 4505230-6 (Version None)
Quarter: 2004Q4

REPORT INFORMATION
  Report Type: 
  Country: None (occurrence: None)
  Receive Date: 20041118
  Receipt Date: 20041118
  Transmission Date: 20050328
  Serious: Yes (Death, Hospitalization, Other)
  Sender: FDA-Public Use
  Company Number: None

PATIENT
  Weight: 121 kg

DRUGS (2)
  1. VIOXX [Suspect]
     Indication: NECK PAIN
     Dosage: QD PO
     Route: 048
     Dates: start: 20030501, end: 20030709
  2. VIOXX [Suspect]
     Indication: POST PROCEDURAL COMPLICATION
     Dosage: QD PO
     Route: 048
     Dates: start: 20030501, end: 20030709

REACTIONS (4)
  - DIARRHOEA [None]
  - HYPOVOLAEMIA [None]
  - RENAL FAILURE ACUTE [None]
  - VOMITING [None]
